FAERS Safety Report 12812471 (Version 2)
Quarter: 2016Q4

REPORT INFORMATION
  Report Type: Report from Study
  Country: None (occurrence: US)
  Receive Date: 20161005
  Receipt Date: 20161121
  Transmission Date: 20170207
  Serious: Yes (Other)
  Sender: FDA-Public Use
  Company Number: US-ABBVIE-16K-163-1741918-00

PATIENT
  Age: 30 Year
  Sex: Male
  Weight: 93.07 kg

DRUGS (1)
  1. HUMIRA [Suspect]
     Active Substance: ADALIMUMAB
     Indication: CROHN^S DISEASE
     Route: 058
     Dates: start: 20151020

REACTIONS (2)
  - Tuberculosis [Not Recovered/Not Resolved]
  - Thyroid hormones decreased [Not Recovered/Not Resolved]

NARRATIVE: CASE EVENT DATE: 201608
